FAERS Safety Report 6199855-2 (Version None)
Quarter: 2009Q2

REPORT INFORMATION
  Report Type: 
  Country: None (occurrence: None)
  Receive Date: 20090522
  Receipt Date: 20090513
  Transmission Date: 20091009
  Serious: Yes (Hospitalization)
  Sender: FDA-Public Use
  Company Number: FR-PFIZER INC-2009212248

PATIENT
  Age: 82 Year

DRUGS (16)
  1. LYRICA [Suspect]
     Dosage: UNK
     Route: 048
  2. ZYPREXA [Suspect]
     Dosage: UNK
     Route: 048
     Dates: end: 20090408
  3. NOCTAMID [Suspect]
     Dosage: UNK
     Route: 048
  4. FLUOXETINE HYDROCHLORIDE [Suspect]
     Dosage: UNK
     Route: 048
     Dates: end: 20090408
  5. APROVEL [Concomitant]
     Route: 065
  6. DIAMICRON [Concomitant]
     Route: 065
  7. GLUCOPHAGE [Concomitant]
     Route: 065
  8. PLAVIX [Concomitant]
     Route: 065
  9. FLECAINIDE ACETATE [Concomitant]
     Route: 065
  10. NEO-MERCAZOLE TAB [Concomitant]
     Route: 065
  11. NEXIUM [Concomitant]
     Route: 065
  12. TRIMEBUTINE [Concomitant]
     Route: 065
  13. FERROUS SULFATE TAB [Concomitant]
  14. FUROSEMIDE [Concomitant]
  15. SMECTA ^DAE WOONG^ [Concomitant]
     Route: 065
  16. DOLIPRANE [Concomitant]

REACTIONS (2)
  - GENERAL PHYSICAL HEALTH DETERIORATION [None]
  - SOMNOLENCE [None]
